FAERS Safety Report 8530155-9 (Version None)
Quarter: 2012Q3

REPORT INFORMATION
  Report Type: 
  Country: None (occurrence: None)
  Receive Date: 20120723
  Receipt Date: 20120719
  Transmission Date: 20120928
  Serious: Yes (Life-Threatening, Other)
  Sender: FDA-Public Use
  Company Number: PHHY2010JP61507

PATIENT
  Sex: Male
  Weight: 65 kg

DRUGS (17)
  1. CLOZARIL [Suspect]
     Dosage: 25 MG, UNK
     Route: 048
     Dates: start: 20100820, end: 20100822
  2. ARIPIPRAZOLE [Concomitant]
     Route: 048
  3. CLOZARIL [Suspect]
     Indication: SCHIZOPHRENIA, PARANOID TYPE
     Dosage: 12.5 MG, UNK
     Route: 048
     Dates: start: 20100819, end: 20100819
  4. CLOZARIL [Suspect]
     Dosage: 125 MG, UNK
     Route: 048
     Dates: start: 20100830, end: 20100901
  5. QUETIAPINE FUMARATE [Concomitant]
     Route: 048
  6. CLOZARIL [Suspect]
     Dosage: 50 MG, UNK
     Route: 048
     Dates: start: 20100823, end: 20100825
  7. CLOZARIL [Suspect]
     Dosage: 100 MG, UNK
     Route: 048
     Dates: start: 20100828, end: 20100829
  8. CLOZARIL [Suspect]
     Dosage: 150 MG, UNK
     Route: 048
     Dates: start: 20100902, end: 20100904
  9. RISPERIDONE [Concomitant]
     Route: 048
  10. OLANZAPINE [Concomitant]
     Route: 048
  11. CLOZARIL [Suspect]
     Dosage: 75 MG, UNK
     Route: 048
     Dates: start: 20100826, end: 20100827
  12. VALPROATE SODIUM [Concomitant]
     Dosage: 800 MG, UNK
     Route: 048
     Dates: start: 20090408
  13. CLOZARIL [Suspect]
     Dosage: 175 MG, UNK
     Route: 048
     Dates: start: 20100905, end: 20100907
  14. PEROSPIRONE HYDROCHLORIDE [Concomitant]
     Route: 048
  15. CLOZARIL [Suspect]
     Dosage: 200 MG, UNK
     Route: 048
     Dates: start: 20100908, end: 20100913
  16. HALOPERIDOL [Concomitant]
     Route: 048
  17. BLONANSERIN [Concomitant]
     Route: 048

REACTIONS (8)
  - SHOCK [None]
  - INFECTION [None]
  - NEUROLEPTIC MALIGNANT SYNDROME [None]
  - WHITE BLOOD CELL COUNT INCREASED [None]
  - OXYGEN SATURATION DECREASED [None]
  - BLOOD GLUCOSE INCREASED [None]
  - PYREXIA [None]
  - TACHYCARDIA [None]
